FAERS Safety Report 5219092-5 (Version None)
Quarter: 2007Q1

REPORT INFORMATION
  Report Type: 
  Country: None (occurrence: None)
  Receive Date: 20070124
  Receipt Date: 20070124
  Transmission Date: 20070707
  Serious: No
  Sender: FDA-Public Use
  Company Number: None

PATIENT
  Sex: Male

DRUGS (2)
  1. NEURONTIN [Suspect]
     Indication: BACK PAIN
     Dosage: 600 MG  4 TIMES A DAY  ORAL   LAST 3 MONTHS
     Route: 048
  2. NEURONTIN [Suspect]
     Indication: PAIN IN EXTREMITY
     Dosage: 600 MG  4 TIMES A DAY  ORAL   LAST 3 MONTHS
     Route: 048

REACTIONS (1)
  - DRUG INEFFECTIVE [None]
